FAERS Safety Report 10027479 (Version 1)
Quarter: 2014Q1

REPORT INFORMATION
  Report Type: Spontaneous
  Country: US (occurrence: US)
  Receive Date: 20140321
  Receipt Date: 20140321
  Transmission Date: 20141002
  Serious: No
  Sender: FDA-Public Use
  Company Number: US-PFIZER INC-2014081065

PATIENT
  Age: 86 Year
  Sex: Female
  Weight: 72.6 kg

DRUGS (1)
  1. LYRICA [Suspect]
     Indication: FIBROMYALGIA
     Dosage: 50 MG, TWO OR THREE TIMES A DAY
     Route: 048
     Dates: end: 201403

REACTIONS (1)
  - Pain [Not Recovered/Not Resolved]
